FAERS Safety Report 6242010-8 (Version None)
Quarter: 2009Q2

REPORT INFORMATION
  Report Type: 
  Country: None (occurrence: None)
  Receive Date: 20090622
  Receipt Date: 20090615
  Transmission Date: 20091009
  Serious: Yes (Hospitalization)
  Sender: FDA-Public Use
  Company Number: 2009007317

PATIENT
  Sex: Female

DRUGS (2)
  1. TREANDA [Suspect]
     Dosage: (90 MG/M2, DAY 1 AND 2), INTRAVENOUS DRIP
     Route: 041
  2. RITUXAN [Concomitant]

REACTIONS (14)
  - ANOREXIA [None]
  - HEADACHE [None]
  - INFECTION [None]
  - INFUSION SITE DISCOLOURATION [None]
  - INFUSION SITE ERYTHEMA [None]
  - INFUSION SITE EXTRAVASATION [None]
  - INFUSION SITE NECROSIS [None]
  - INFUSION SITE PAIN [None]
  - INFUSION SITE SWELLING [None]
  - INFUSION SITE VESICLES [None]
  - INFUSION SITE WARMTH [None]
  - NAUSEA [None]
  - PHLEBITIS [None]
  - VOMITING [None]
